FAERS Safety Report 9538091 (Version 3)
Quarter: 2013Q4

REPORT INFORMATION
  Report Type: Spontaneous
  Country: US (occurrence: US)
  Receive Date: 20130920
  Receipt Date: 20131007
  Transmission Date: 20140711
  Serious: Yes (Hospitalization)
  Sender: FDA-Public Use
  Company Number: US-BIOGENIDEC-2012BI004676

PATIENT
  Age: 45 Year
  Sex: Female

DRUGS (4)
  1. AVONEX [Suspect]
     Indication: MULTIPLE SCLEROSIS
     Route: 030
     Dates: start: 19970601, end: 2002
  2. AVONEX [Suspect]
     Indication: MULTIPLE SCLEROSIS
     Route: 030
     Dates: start: 20050208, end: 20050316
  3. AVONEX [Suspect]
     Indication: MULTIPLE SCLEROSIS
     Route: 030
     Dates: end: 20130112
  4. KLONOPIN [Concomitant]
     Indication: BIPOLAR I DISORDER

REACTIONS (8)
  - Suicide attempt [Recovered/Resolved]
  - Depression [Not Recovered/Not Resolved]
  - Bipolar I disorder [Not Recovered/Not Resolved]
  - Agoraphobia [Not Recovered/Not Resolved]
  - Panic disorder [Not Recovered/Not Resolved]
  - Anger [Not Recovered/Not Resolved]
  - Feeling of despair [Unknown]
  - Emotional distress [Unknown]
